FAERS Safety Report 14418421 (Version 1)
Quarter: 2018Q1

REPORT INFORMATION
  Report Type: Spontaneous
  Country: US (occurrence: US)
  Receive Date: 20180122
  Receipt Date: 20180122
  Transmission Date: 20180509
  Serious: No
  Sender: FDA-Public Use
  Company Number: US-INTERCEPT-PMOCA2017001417

PATIENT

DRUGS (11)
  1. PROBIOTIC [Concomitant]
     Active Substance: PROBIOTICS NOS
  2. OCALIVA [Suspect]
     Active Substance: OBETICHOLIC ACID
     Indication: PRIMARY BILIARY CHOLANGITIS
     Dosage: 5 MG, QD
     Route: 048
  3. VITAMIN A [Concomitant]
     Active Substance: VITAMIN A
     Dosage: 10000 UT, UNK
  4. VITAMIN D2 [Concomitant]
     Active Substance: ERGOCALCIFEROL
     Dosage: 50000 UT, UNK
  5. NEXIUM [Concomitant]
     Active Substance: ESOMEPRAZOLE MAGNESIUM
     Dosage: 20 UNK, UNK
  6. MAGNESIUM [Concomitant]
     Active Substance: MAGNESIUM
     Dosage: 100 MG, UNK
  7. HYDROXIZINE HCL [Concomitant]
     Dosage: 10 MG, UNK
  8. DIPHENOXYLATE/ATROPINE [Concomitant]
     Active Substance: ATROPINE\DIPHENOXYLATE
  9. URSODIOL. [Concomitant]
     Active Substance: URSODIOL
     Dosage: 500 MG, UNK
  10. ZINC. [Concomitant]
     Active Substance: ZINC
     Dosage: 10 MG, UNK
  11. FISH OIL [Concomitant]
     Active Substance: FISH OIL
     Dosage: 1000 MG, UNK

REACTIONS (1)
  - Malaise [Unknown]
